FAERS Safety Report 9715671 (Version 1)
Quarter: 2013Q4

REPORT INFORMATION
  Report Type: Spontaneous
  Country: GB (occurrence: GB)
  Receive Date: 20131127
  Receipt Date: 20131127
  Transmission Date: 20140711
  Serious: Yes (Other)
  Sender: FDA-Public Use
  Company Number: GB-JNJFOC-20131109315

PATIENT
  Sex: 0

DRUGS (1)
  1. XEPLION [Suspect]
     Indication: SCHIZOPHRENIA
     Route: 030

REACTIONS (7)
  - Type 1 diabetes mellitus [Unknown]
  - Extrapyramidal disorder [Unknown]
  - Sexual dysfunction [Unknown]
  - Fatigue [Unknown]
  - Injection site pain [Unknown]
  - Weight increased [Unknown]
  - Blood prolactin increased [Unknown]
